FAERS Safety Report 23463582 (Version 3)
Quarter: 2024Q3

REPORT INFORMATION
  Report Type: Spontaneous
  Country: US (occurrence: US)
  Receive Date: 20240131
  Receipt Date: 20240711
  Transmission Date: 20241016
  Serious: No
  Sender: BRISTOL MYERS SQUIBB
  Company Number: US-BRISTOL-MYERS SQUIBB COMPANY-2024-015332

PATIENT
  Age: 73 Year
  Sex: Male

DRUGS (2)
  1. LENALIDOMIDE [Suspect]
     Active Substance: LENALIDOMIDE
     Indication: Plasma cell myeloma
     Dosage: FREQUENCY: EVERY OTHER DAY FOR 21 DAYS OF 28 DAYS CYCLE
     Route: 048
  2. LACTULOSE [Suspect]
     Active Substance: LACTULOSE
     Indication: Constipation

REACTIONS (9)
  - Pain [Unknown]
  - Fatigue [Unknown]
  - Blood calcium decreased [Unknown]
  - Constipation [Unknown]
  - Diarrhoea [Unknown]
  - Muscle spasms [Recovering/Resolving]
  - Decreased appetite [Unknown]
  - Asthenia [Unknown]
  - Product dose omission issue [Unknown]
